FAERS Safety Report 6382675-3 (Version None)
Quarter: 2009Q3

REPORT INFORMATION
  Report Type: 
  Country: None (occurrence: None)
  Receive Date: 20090930
  Receipt Date: 20090930
  Transmission Date: 20100115
  Serious: Yes (Death, Congenital Anomaly)
  Sender: FDA-Public Use
  Company Number: GB-CELGENEUS-167-20484-09090237

PATIENT
  Sex: Female
  Weight: 1.93 kg

DRUGS (10)
  1. INNOHEP [Suspect]
     Route: 064
     Dates: start: 20010129, end: 20010405
  2. INNOHEP [Suspect]
     Route: 064
     Dates: start: 20010405, end: 20010411
  3. INNOHEP [Suspect]
     Route: 064
     Dates: start: 20010411, end: 20010803
  4. BETAMETHASONE [Concomitant]
     Route: 064
     Dates: start: 20010611, end: 20010612
  5. SODIUM CITRATE [Concomitant]
     Indication: DRUG USE FOR UNKNOWN INDICATION
     Route: 065
  6. RANITIDINE [Concomitant]
     Indication: DRUG USE FOR UNKNOWN INDICATION
     Route: 065
  7. METOCLOPRAMIDE [Concomitant]
     Indication: DRUG USE FOR UNKNOWN INDICATION
     Route: 065
  8. GAVISCON [Concomitant]
     Indication: DRUG USE FOR UNKNOWN INDICATION
     Route: 065
  9. DIAMORPHINE [Concomitant]
     Indication: DRUG USE FOR UNKNOWN INDICATION
     Route: 065
  10. BUPIVACAINE [Concomitant]
     Indication: DRUG USE FOR UNKNOWN INDICATION
     Route: 065

REACTIONS (6)
  - DRUG EXPOSURE DURING PREGNANCY [None]
  - EBSTEIN'S ANOMALY [None]
  - HYDROPS FOETALIS [None]
  - HYPERTENSION [None]
  - METABOLIC ACIDOSIS [None]
  - PREMATURE BABY [None]
